FAERS Safety Report 19871400 (Version 1)
Quarter: 2021Q3

REPORT INFORMATION
  Report Type: Spontaneous
  Country: US (occurrence: US)
  Receive Date: 20210922
  Receipt Date: 20210922
  Transmission Date: 20211014
  Serious: No
  Sender: FDA-Public Use
  Company Number: None

PATIENT
  Age: 32 Year
  Sex: Female

DRUGS (1)
  1. TALICIA [Suspect]
     Active Substance: AMOXICILLIN\OMEPRAZOLE MAGNESIUM\RIFABUTIN
     Indication: HELICOBACTER INFECTION
     Route: 048
     Dates: start: 20210910, end: 20210920

REACTIONS (14)
  - Chills [None]
  - Dry mouth [None]
  - Platelet count decreased [None]
  - Pain [None]
  - Eye pain [None]
  - White blood cell count decreased [None]
  - Neutrophil count decreased [None]
  - Myalgia [None]
  - Condition aggravated [None]
  - Bedridden [None]
  - Monocyte count decreased [None]
  - Pyrexia [None]
  - Headache [None]
  - Eosinophil count decreased [None]

NARRATIVE: CASE EVENT DATE: 20210915
